FAERS Safety Report 9060206 (Version 3)
Quarter: 2014Q2

REPORT INFORMATION
  Report Type: Spontaneous
  Country: US (occurrence: US)
  Receive Date: 20130212
  Receipt Date: 20140611
  Transmission Date: 20141212
  Serious: Yes (Other)
  Sender: FDA-Public Use
  Company Number: US-009507513-1302USA004238

PATIENT
  Sex: Female

DRUGS (2)
  1. FOSAMAX [Suspect]
     Indication: OSTEOPOROSIS
     Dosage: 70 MG, QW
     Route: 048
     Dates: start: 20021113, end: 20071003
  2. FOSAMAX PLUS D [Suspect]
     Indication: OSTEOPOROSIS
     Dosage: 70 MG/2800 IU, QW
     Route: 048
     Dates: start: 20021113, end: 20071003

REACTIONS (13)
  - Osteonecrosis of jaw [Unknown]
  - Oral surgery [Unknown]
  - Periodontal operation [Unknown]
  - Endodontic procedure [Unknown]
  - Jaw operation [Unknown]
  - Hysterectomy [Unknown]
  - Hypertension [Unknown]
  - Blood cholesterol increased [Unknown]
  - Bone loss [Unknown]
  - Exostosis of jaw [Unknown]
  - Tooth fracture [Unknown]
  - Sensitivity of teeth [Unknown]
  - Tooth extraction [Unknown]
